FAERS Safety Report 9382342 (Version 2)
Quarter: 2013Q3

REPORT INFORMATION
  Report Type: Spontaneous
  Country: US (occurrence: US)
  Receive Date: 20130703
  Receipt Date: 20130809
  Transmission Date: 20140515
  Serious: No
  Sender: FDA-Public Use
  Company Number: US-VERTEX PHARMACEUTICALS INC-2013-007669

PATIENT
  Age: 52 Year
  Sex: Male

DRUGS (5)
  1. INCIVEK [Suspect]
     Indication: HEPATITIS C
     Dosage: 750 MG, TID
     Route: 048
     Dates: start: 20130617, end: 20130625
  2. PEGINTERFERON [Suspect]
     Indication: HEPATITIS C
     Dosage: 180 ?G, UNK
     Dates: start: 20130617, end: 20130625
  3. RIBAVIRIN [Suspect]
     Indication: HEPATITIS C
     Dosage: 600 MG, UNK
     Route: 048
     Dates: start: 20130617
  4. WELLBUTRIN [Concomitant]
     Indication: DEPRESSION
  5. SEROQUEL [Concomitant]
     Indication: DEPRESSION

REACTIONS (2)
  - Rash maculo-papular [Recovered/Resolved]
  - Pruritus [Unknown]
